FAERS Safety Report 21286495 (Version 2)
Quarter: 2022Q3

REPORT INFORMATION
  Report Type: Spontaneous
  Country: US (occurrence: US)
  Receive Date: 20220902
  Receipt Date: 20220928
  Transmission Date: 20221027
  Serious: Yes (Hospitalization)
  Sender: FDA-Public Use
  Company Number: US-PFIZER INC-202201104534

PATIENT
  Age: 58 Year
  Sex: Female
  Weight: 77.11 kg

DRUGS (1)
  1. DEPO-ESTRADIOL [Suspect]
     Active Substance: ESTRADIOL CYPIONATE
     Dosage: 5 ML (ONE AND A HALF ML INJECTED EVERY 14 DAYS)
     Dates: start: 1990

REACTIONS (6)
  - Wound [Unknown]
  - Diabetic ulcer [Recovered/Resolved]
  - Off label use [Unknown]
  - Malaise [Unknown]
  - Heart rate abnormal [Unknown]
  - Feeling abnormal [Unknown]
